FAERS Safety Report 5166915-4 (Version None)
Quarter: 2006Q4

REPORT INFORMATION
  Report Type: 
  Country: None (occurrence: None)
  Receive Date: 20061129
  Receipt Date: 20061116
  Transmission Date: 20070319
  Serious: Yes (Hospitalization)
  Sender: FDA-Public Use
  Company Number: 2006143165

PATIENT
  Age: 53 Year
  Sex: Female

DRUGS (6)
  1. PREDNISONE TAB [Suspect]
     Indication: RHEUMATOID ARTHRITIS
     Dosage: (8 MG, 1 IN 1 D), ORAL
     Route: 048
     Dates: end: 20040128
  2. METHOTREXATE [Suspect]
     Dosage: (20 MG, 1 IN 1D), ORAL
     Route: 048
     Dates: end: 20040128
  3. ENBREL [Suspect]
     Indication: RHEUMATOID ARTHRITIS
     Dosage: (25 MG, 2 IN 1 WK), SUBCUTANEOUS
     Route: 058
     Dates: start: 20040101
  4. FOLIC ACID [Concomitant]
  5. BISOPROLOL FUMARATE [Concomitant]
  6. COLECALCIFEROL (COLECALCIFEROL) [Concomitant]

REACTIONS (9)
  - ABDOMINAL PAIN [None]
  - ACUTE RESPIRATORY DISTRESS SYNDROME [None]
  - EMPHYSEMA [None]
  - NAUSEA [None]
  - PLEURAL EFFUSION [None]
  - PNEUMONIA PNEUMOCOCCAL [None]
  - PYREXIA [None]
  - SHOCK [None]
  - VOMITING [None]
